FAERS Safety Report 10100269 (Version 2)
Quarter: 2014Q2

REPORT INFORMATION
  Report Type: Spontaneous
  Country: US (occurrence: US)
  Receive Date: 20140423
  Receipt Date: 20140423
  Transmission Date: 20141212
  Serious: No
  Sender: FDA-Public Use
  Company Number: US-GILEAD-2013-0076295

PATIENT
  Sex: Female

DRUGS (4)
  1. LETAIRIS [Suspect]
     Indication: PULMONARY ARTERIAL HYPERTENSION
     Dosage: 5 MG, QD
     Dates: start: 20120411
  2. LETAIRIS [Suspect]
     Indication: OBESITY
  3. TYVASO [Concomitant]
  4. ADCIRCA [Concomitant]

REACTIONS (7)
  - Wheezing [Unknown]
  - Toothache [Unknown]
  - Pain in extremity [Unknown]
  - Tooth extraction [Unknown]
  - Red blood cell count decreased [Unknown]
  - Haemoglobin decreased [Unknown]
  - Fatigue [Unknown]
